FAERS Safety Report 10166792 (Version 4)
Quarter: 2014Q4

REPORT INFORMATION
  Report Type: Report from Study
  Country: US (occurrence: US)
  Receive Date: 20140512
  Receipt Date: 20141118
  Transmission Date: 20150528
  Serious: Yes (Death, Life-Threatening, Hospitalization, Other)
  Sender: FDA-Public Use
  Company Number: US-ALEXION-A201401663

PATIENT

DRUGS (3)
  1. SOLIRIS [Suspect]
     Active Substance: ECULIZUMAB
     Indication: HAEMOLYTIC URAEMIC SYNDROME
     Dosage: 1200 MG, Q2W
     Route: 042
     Dates: start: 20130418
  2. PREDNISONE. [Concomitant]
     Active Substance: PREDNISONE
     Indication: STEROID THERAPY
     Dosage: VARIES, QD
     Route: 065
     Dates: start: 20130415, end: 20130430
  3. RIFAMPIN. [Concomitant]
     Active Substance: RIFAMPIN
     Indication: PRODUCT USED FOR UNKNOWN INDICATION
     Dosage: UNK, QD
     Route: 065
     Dates: start: 20130415, end: 20130430

REACTIONS (12)
  - Dehydration [Not Recovered/Not Resolved]
  - Oedema peripheral [Recovered/Resolved]
  - Death [Fatal]
  - Colostomy [Unknown]
  - Hypotension [Not Recovered/Not Resolved]
  - Fluid imbalance [Unknown]
  - Nausea [Recovered/Resolved]
  - Hypotension [Unknown]
  - Abdominal pain [Recovered/Resolved]
  - Sepsis [Not Recovered/Not Resolved]
  - Intestinal perforation [Not Recovered/Not Resolved]
  - Vomiting [Recovered/Resolved]

NARRATIVE: CASE EVENT DATE: 20140424
